FAERS Safety Report 6276026-2 (Version None)
Quarter: 2009Q3

REPORT INFORMATION
  Report Type: 
  Country: None (occurrence: None)
  Receive Date: 20090722
  Receipt Date: 20090720
  Transmission Date: 20100115
  Serious: Yes (Hospitalization, Other)
  Sender: FDA-Public Use
  Company Number: US-RB-018162-09

PATIENT
  Sex: Female

DRUGS (3)
  1. SUBOXONE [Suspect]
     Route: 060
     Dates: start: 20090101
  2. XANAX [Suspect]
     Dosage: DOSE UNKNOWN
     Route: 065
     Dates: start: 20090701, end: 20090701
  3. ROBAXIN [Suspect]
     Dosage: DOSE UNKNOWN
     Route: 065
     Dates: start: 20090701, end: 20090701

REACTIONS (1)
  - SUICIDE ATTEMPT [None]
